FAERS Safety Report 24307859 (Version 1)
Quarter: 2024Q3

REPORT INFORMATION
  Report Type: Spontaneous
  Country: GB (occurrence: GB)
  Receive Date: 20240911
  Receipt Date: 20240911
  Transmission Date: 20241017
  Serious: Yes (Other)
  Sender: CIPLA
  Company Number: GB-MHRA-TPP54531347C10389046YC1724772553387

PATIENT

DRUGS (3)
  1. ALBUTEROL [Suspect]
     Active Substance: ALBUTEROL
     Indication: Ill-defined disorder
     Dosage: UNK
     Route: 065
     Dates: start: 20240827
  2. AMOXICILLIN [Concomitant]
     Active Substance: AMOXICILLIN
     Indication: Ill-defined disorder
     Dosage: 1 DOSAGE FORM, TID (TAKE ONE CAPSULE THREE TIMES A DAY FOR INFECTION)
     Route: 065
     Dates: start: 20240822, end: 20240827
  3. SYMBICORT [Concomitant]
     Active Substance: BUDESONIDE\FORMOTEROL FUMARATE DIHYDRATE
     Indication: Ill-defined disorder
     Dosage: 2 DOSAGE FORM, BID (TWO PUFFS TWICE DAILY)
     Route: 065
     Dates: start: 20221018

REACTIONS (1)
  - Tic [Recovered/Resolved]

NARRATIVE: CASE EVENT DATE: 20240827
